FAERS Safety Report 6212243-5 (Version None)
Quarter: 2009Q2

REPORT INFORMATION
  Report Type: 
  Country: None (occurrence: None)
  Receive Date: 20090529
  Receipt Date: 20090519
  Transmission Date: 20091009
  Serious: Yes (Other)
  Sender: FDA-Public Use
  Company Number: 09-000545

PATIENT
  Age: 19 Year
  Sex: Female
  Weight: 80.7 kg

DRUGS (2)
  1. LOESTRIN 24 FE [Suspect]
     Indication: HAEMORRHAGIC OVARIAN CYST
     Dosage: 20/1000 UG, QD, ORAL
     Route: 048
     Dates: start: 20081201
  2. LOESTRIN 24 FE [Suspect]
     Indication: OVARIAN DISORDER
     Dosage: 20/1000 UG, QD, ORAL
     Route: 048
     Dates: start: 20081201

REACTIONS (7)
  - DRUG INEFFECTIVE [None]
  - HAEMORRHAGIC OVARIAN CYST [None]
  - INFLUENZA [None]
  - NAUSEA [None]
  - OVARIAN CYST RUPTURED [None]
  - PREGNANCY ON ORAL CONTRACEPTIVE [None]
  - TINEA INFECTION [None]
